FAERS Safety Report 4343600-X (Version None)
Quarter: 2004Q2

REPORT INFORMATION
  Report Type: 
  Country: None (occurrence: None)
  Receive Date: 20040419
  Receipt Date: 20040401
  Transmission Date: 20050107
  Serious: Yes (Hospitalization, Other)
  Sender: FDA-Public Use
  Company Number: 701425

PATIENT
  Age: 47 Year
  Sex: Female
  Weight: 128.8216 kg

DRUGS (36)
  1. AMEVIVE [Suspect]
     Indication: PSORIASIS
     Dosage: 15 MG QW IM
     Route: 030
     Dates: start: 20031125, end: 20031209
  2. LISINOPRIL [Concomitant]
  3. EFFEXOR [Concomitant]
  4. SPIRONOLACTONE [Concomitant]
  5. LIPITOR [Concomitant]
  6. AVANDIA [Concomitant]
  7. HUMALOG [Concomitant]
  8. REFLAFEN [Concomitant]
  9. CEFZIL [Concomitant]
  10. GENTAMYCIN-MP [Concomitant]
  11. ZOCOR [Concomitant]
  12. ACCUPRIL [Concomitant]
  13. CEFTIN [Concomitant]
  14. GUIATUSS [Concomitant]
  15. FIORICET [Concomitant]
  16. LIQUIBID-D [Concomitant]
  17. METHOTREXATE [Concomitant]
  18. VIOXX [Concomitant]
  19. TORADOL [Concomitant]
  20. MEDROL [Concomitant]
  21. DARVOCET-N 100 [Concomitant]
  22. DEXAMETHASONE PHOSPHATE [Concomitant]
  23. DEPO-MEDROL [Concomitant]
  24. LORTAB [Concomitant]
  25. CLINDAMYCIN HCL [Concomitant]
  26. GLUCOPHAGE ^UNS^ [Concomitant]
  27. DEXAMETHASONE PHOSPHATE [Concomitant]
  28. PREDNISONE [Concomitant]
  29. ZOLOFT [Concomitant]
  30. KEFLEX [Concomitant]
  31. LIQUIBID-D [Concomitant]
  32. NIZORAL [Concomitant]
  33. VALTREX [Concomitant]
  34. ATUSS MS [Concomitant]
  35. MAXZIDE [Concomitant]
  36. SKELAXIN [Concomitant]

REACTIONS (16)
  - ACUTE PRERENAL FAILURE [None]
  - ACUTE RESPIRATORY DISTRESS SYNDROME [None]
  - ATELECTASIS [None]
  - CARDIOMEGALY [None]
  - DEHYDRATION [None]
  - IMMUNE SYSTEM DISORDER [None]
  - INTERSTITIAL LUNG DISEASE [None]
  - NORMOCHROMIC NORMOCYTIC ANAEMIA [None]
  - PNEUMONIA BACTERIAL [None]
  - PSORIASIS [None]
  - PULMONARY OEDEMA [None]
  - RIB FRACTURE [None]
  - SHIFT TO THE LEFT [None]
  - STREPTOCOCCAL INFECTION [None]
  - SWELLING [None]
  - T-LYMPHOCYTE COUNT DECREASED [None]
